FAERS Safety Report 10083445 (Version 1)
Quarter: 2014Q2

REPORT INFORMATION
  Report Type: Spontaneous
  Country: US (occurrence: None)
  Receive Date: 20140416
  Receipt Date: 20140416
  Transmission Date: 20141212
  Serious: Yes (Other)
  Sender: FDA-Public Use
  Company Number: None

PATIENT
  Age: 36 Year
  Sex: Male
  Weight: 81.65 kg

DRUGS (1)
  1. DIVALPROEX ER [Suspect]
     Indication: CONVULSION
     Dosage: 3 PILLS, AT BEDTIME, TAKEN BY MOUTH
     Route: 048
     Dates: start: 20131026, end: 20131204

REACTIONS (2)
  - Convulsion [None]
  - Product substitution issue [None]
